FAERS Safety Report 7122467-0 (Version None)
Quarter: 2010Q4

REPORT INFORMATION
  Report Type: 
  Country: None (occurrence: None)
  Receive Date: 20101124
  Receipt Date: 20101118
  Transmission Date: 20110411
  Serious: Yes (Hospitalization)
  Sender: FDA-Public Use
  Company Number: DK-MERCK-1011DNK00009

PATIENT
  Sex: Male

DRUGS (1)
  1. ZOCOR [Suspect]
     Indication: HYPERCHOLESTEROLAEMIA
     Route: 048
     Dates: start: 20010101, end: 20020101

REACTIONS (7)
  - BLOOD CREATININE INCREASED [None]
  - CHEST PAIN [None]
  - GLOMERULONEPHRITIS MEMBRANOUS [None]
  - MALAISE [None]
  - NEURITIS [None]
  - PERIPHERAL SENSORY NEUROPATHY [None]
  - RHABDOMYOLYSIS [None]
